FAERS Safety Report 6269801-1 (Version None)
Quarter: 2009Q3

REPORT INFORMATION
  Report Type: 
  Country: None (occurrence: None)
  Receive Date: 20090716
  Receipt Date: 20090708
  Transmission Date: 20100115
  Serious: Yes (Life-Threatening, Hospitalization)
  Sender: FDA-Public Use
  Company Number: AU-JNJFOC-20090702405

PATIENT
  Age: 45 Year
  Sex: Female

DRUGS (1)
  1. REMICADE [Suspect]
     Indication: ANKYLOSING SPONDYLITIS
     Dosage: 4 TOTAL INFUSIONS (DATE UNSPECIFIED) PRIOR TO ONSET OF EVENT.
     Route: 042

REACTIONS (2)
  - ACUTE HEPATIC FAILURE [None]
  - LIVER TRANSPLANT [None]
